FAERS Safety Report 12170859 (Version 2)
Quarter: 2018Q1

REPORT INFORMATION
  Report Type: Spontaneous
  Country: US (occurrence: US)
  Receive Date: 20160311
  Receipt Date: 20180313
  Transmission Date: 20180508
  Serious: Yes (Hospitalization, Disabling)
  Sender: FDA-Public Use
  Company Number: US-ENDO PHARMACEUTICALS INC.-2015-005035

PATIENT
  Age: 56 Year
  Sex: Male
  Weight: 106.58 kg

DRUGS (10)
  1. ASPIRIN. [Concomitant]
     Active Substance: ASPIRIN
     Indication: CARDIOVASCULAR EVENT PROPHYLAXIS
     Dosage: UNK UNKNOWN, UNKNOWN
     Route: 065
     Dates: start: 2013
  2. CENTRUM SILVER [Concomitant]
     Active Substance: MINERALS\VITAMINS
     Indication: VITAMIN SUPPLEMENTATION
     Dosage: UNK UNKNOWN, UNKNOWN
     Route: 065
     Dates: start: 2010
  3. HYDROCODONE BITARTRATE AND ACETAMINOPHEN [Concomitant]
     Active Substance: ACETAMINOPHEN\HYDROCODONE BITARTRATE
     Indication: PAIN
     Dosage: UNK UNKNOWN, UNKNOWN
     Route: 065
     Dates: start: 2013
  4. ATORVASTATIN [Concomitant]
     Active Substance: ATORVASTATIN
     Indication: BLOOD CHOLESTEROL
     Dosage: UNK UNKNOWN, UNKNOWN
     Route: 065
     Dates: start: 2013
  5. METOPROLOL. [Concomitant]
     Active Substance: METOPROLOL
     Indication: PRODUCT USED FOR UNKNOWN INDICATION
     Dosage: UNK UNKNOWN, UNKNOWN
     Route: 065
     Dates: start: 2010
  6. TESTIM [Suspect]
     Active Substance: TESTOSTERONE
     Indication: ANDROGEN REPLACEMENT THERAPY
     Dosage: UNK UNKNOWN, DAILY
     Route: 062
     Dates: start: 2012, end: 201312
  7. VITAMIN D [Concomitant]
     Active Substance: CHOLECALCIFEROL
     Indication: VITAMIN SUPPLEMENTATION
     Dosage: UNK UNKNOWN, UNKNOWN
     Route: 065
     Dates: start: 2013
  8. ULORIC [Concomitant]
     Active Substance: FEBUXOSTAT
     Indication: GOUT
     Dosage: UNK UNKNOWN, UNKNOWN
     Route: 065
     Dates: start: 2009
  9. RABEPRAZOLE [Concomitant]
     Active Substance: RABEPRAZOLE
     Indication: GASTROOESOPHAGEAL REFLUX DISEASE
     Dosage: UNK UNKNOWN, UNKNOWN
     Route: 065
     Dates: start: 2010
  10. CYMBALTA [Concomitant]
     Active Substance: DULOXETINE HYDROCHLORIDE
     Indication: PRODUCT USED FOR UNKNOWN INDICATION
     Dosage: UNK UNKNOWN, UNKNOWN
     Route: 065
     Dates: start: 2010

REACTIONS (4)
  - Tendon disorder [Not Recovered/Not Resolved]
  - Myocardial infarction [Not Recovered/Not Resolved]
  - Hypertension [Unknown]
  - Spinal compression fracture [Unknown]

NARRATIVE: CASE EVENT DATE: 2012
